FAERS Safety Report 7657068-9 (Version None)
Quarter: 2011Q3

REPORT INFORMATION
  Report Type: 
  Country: None (occurrence: None)
  Receive Date: 20110804
  Receipt Date: 20100623
  Transmission Date: 20111222
  Serious: No
  Sender: FDA-Public Use
  Company Number: US-GLAXOSMITHKLINE-A0866766A

PATIENT
  Age: 71 Year
  Sex: Female

DRUGS (4)
  1. ADVAIR DISKUS 100/50 [Suspect]
     Indication: ASTHMA
     Dosage: 1PUFF TWICE PER DAY
     Route: 055
     Dates: start: 20060101, end: 20100617
  2. DIOVAN [Concomitant]
  3. OSCAL [Concomitant]
  4. PROAIR HFA [Concomitant]

REACTIONS (3)
  - COUGH [None]
  - WHEEZING [None]
  - PRODUCT QUALITY ISSUE [None]
